FAERS Safety Report 8408710-6 (Version None)
Quarter: 2012Q2

REPORT INFORMATION
  Report Type: 
  Country: None (occurrence: None)
  Receive Date: 20120604
  Receipt Date: 20120525
  Transmission Date: 20120825
  Serious: Yes (Other)
  Sender: FDA-Public Use
  Company Number: JP-JNJFOC-20120600175

PATIENT
  Sex: Male

DRUGS (22)
  1. SODIUM AUROTHIOMALATE [Concomitant]
     Indication: RHEUMATOID ARTHRITIS
     Route: 030
  2. AMARYL [Concomitant]
     Indication: RHEUMATOID ARTHRITIS
     Route: 048
  3. PREDNISOLONE [Concomitant]
     Indication: RHEUMATOID ARTHRITIS
     Route: 048
  4. LIMETHASON [Concomitant]
     Indication: RHEUMATOID ARTHRITIS
     Route: 042
  5. CARVEDILOL [Concomitant]
     Indication: RHEUMATOID ARTHRITIS
     Route: 048
  6. ZETIA [Concomitant]
     Indication: RHEUMATOID ARTHRITIS
     Route: 048
  7. ALLOPURINOL [Concomitant]
     Indication: RHEUMATOID ARTHRITIS
     Route: 048
  8. MUCOSTA [Concomitant]
     Indication: RHEUMATOID ARTHRITIS
  9. ALL OTHER THERAPEUTIC PRODUCTS [Concomitant]
     Indication: RHEUMATOID ARTHRITIS
     Route: 048
  10. LOXONIN [Concomitant]
     Indication: RHEUMATOID ARTHRITIS
  11. ALENDRONATE SODIUM [Concomitant]
     Indication: RHEUMATOID ARTHRITIS
     Route: 048
  12. RABEPRAZOLE SODIUM [Concomitant]
     Indication: RHEUMATOID ARTHRITIS
     Route: 048
  13. SITAGLIPTIN PHOSPHATE [Concomitant]
     Indication: RHEUMATOID ARTHRITIS
     Route: 048
  14. LIVALO [Concomitant]
     Indication: RHEUMATOID ARTHRITIS
     Route: 048
  15. CANDESARTAN CILEXETIL AND HYDROCHLOROTHIAZIDE [Concomitant]
     Indication: RHEUMATOID ARTHRITIS
     Route: 048
  16. NORVASC [Concomitant]
     Indication: RHEUMATOID ARTHRITIS
     Route: 048
  17. SIMPONI [Suspect]
     Indication: RHEUMATOID ARTHRITIS
     Route: 058
     Dates: start: 20120208
  18. METHOTREXATE [Concomitant]
     Indication: RHEUMATOID ARTHRITIS
  19. URINORM [Concomitant]
     Indication: RHEUMATOID ARTHRITIS
     Route: 048
  20. ASPIRIN [Concomitant]
     Indication: RHEUMATOID ARTHRITIS
     Route: 048
  21. PLAVIX [Concomitant]
     Indication: RHEUMATOID ARTHRITIS
     Route: 048
  22. FOLIC ACID [Concomitant]
     Indication: PROPHYLAXIS

REACTIONS (1)
  - MYOCARDIAL INFARCTION [None]
